FAERS Safety Report 10732280 (Version 1)
Quarter: 2015Q1

REPORT INFORMATION
  Report Type: Spontaneous
  Country: US (occurrence: US)
  Receive Date: 20150123
  Receipt Date: 20150123
  Transmission Date: 20150721
  Serious: Yes (Other)
  Sender: FDA-Public Use
  Company Number: US-AMGEN-USASP2015005108

PATIENT
  Age: 25 Year
  Sex: Male

DRUGS (1)
  1. ENBREL [Suspect]
     Active Substance: ETANERCEPT
     Indication: JUVENILE IDIOPATHIC ARTHRITIS
     Dosage: UNK MG, QWK
     Route: 065
     Dates: start: 2013

REACTIONS (5)
  - Joint fluid drainage [Not Recovered/Not Resolved]
  - Joint crepitation [Not Recovered/Not Resolved]
  - Joint swelling [Not Recovered/Not Resolved]
  - Joint lock [Not Recovered/Not Resolved]
  - Feeling hot [Not Recovered/Not Resolved]
